FAERS Safety Report 6978559-X (Version None)
Quarter: 2010Q3

REPORT INFORMATION
  Report Type: 
  Country: None (occurrence: None)
  Receive Date: 20100913
  Receipt Date: 20100730
  Transmission Date: 20110219
  Serious: Yes (Life-Threatening, Hospitalization, Other)
  Sender: FDA-Public Use
  Company Number: US-BAXTER-2009BH014197

PATIENT
  Age: 76 Year
  Sex: Female
  Weight: 63 kg

DRUGS (26)
  1. HEPARIN SODIUM INJECTION [Suspect]
     Indication: THROMBOSIS PROPHYLAXIS
     Route: 042
     Dates: start: 20071005, end: 20071005
  2. HEPARIN SODIUM INJECTION [Suspect]
     Indication: ARTERIOVENOUS FISTULA OPERATION
     Route: 042
     Dates: start: 20071005, end: 20071005
  3. HEPARIN SODIUM INJECTION [Suspect]
     Indication: CATHETER PLACEMENT
     Route: 042
     Dates: start: 20071005, end: 20071005
  4. HEPARIN SODIUM INJECTION [Suspect]
     Route: 042
     Dates: start: 20071005, end: 20071005
  5. HEPARIN SODIUM INJECTION [Suspect]
     Route: 042
     Dates: start: 20071005, end: 20071005
  6. HEPARIN SODIUM INJECTION [Suspect]
     Route: 042
     Dates: start: 20071005, end: 20071005
  7. HEPARIN SODIUM INJECTION [Suspect]
     Route: 042
     Dates: start: 20081008, end: 20081008
  8. HEPARIN SODIUM INJECTION [Suspect]
     Route: 042
     Dates: start: 20081008, end: 20081008
  9. HEPARIN SODIUM INJECTION [Suspect]
     Route: 042
     Dates: start: 20081008, end: 20081008
  10. HEPARIN SODIUM INJECTION [Suspect]
     Route: 042
     Dates: start: 20081005, end: 20081005
  11. HEPARIN SODIUM INJECTION [Suspect]
     Route: 042
     Dates: start: 20081005, end: 20081005
  12. HEPARIN SODIUM INJECTION [Suspect]
     Route: 042
     Dates: start: 20081005, end: 20081005
  13. VESICARE [Concomitant]
     Indication: PRODUCT USED FOR UNKNOWN INDICATION
     Route: 065
  14. METOPROLOL TARTRATE [Concomitant]
     Indication: PRODUCT USED FOR UNKNOWN INDICATION
     Route: 065
  15. NEPHROCAPS [Concomitant]
     Indication: PRODUCT USED FOR UNKNOWN INDICATION
     Route: 048
  16. HECTOROL [Concomitant]
     Indication: PRODUCT USED FOR UNKNOWN INDICATION
     Route: 065
  17. AMLODIPINE BESYLATE [Concomitant]
     Indication: PRODUCT USED FOR UNKNOWN INDICATION
     Route: 065
  18. MICARDIS HCT [Concomitant]
     Indication: PRODUCT USED FOR UNKNOWN INDICATION
     Route: 065
  19. OXYTROL [Concomitant]
     Indication: PRODUCT USED FOR UNKNOWN INDICATION
     Route: 065
  20. CEFDINIR [Concomitant]
     Indication: PRODUCT USED FOR UNKNOWN INDICATION
     Route: 065
  21. PROMETHAZINE DM [Concomitant]
     Indication: PRODUCT USED FOR UNKNOWN INDICATION
     Route: 065
  22. GATIFLOXACIN [Concomitant]
     Indication: PRODUCT USED FOR UNKNOWN INDICATION
     Route: 065
  23. EZETIMIBE [Concomitant]
     Indication: PRODUCT USED FOR UNKNOWN INDICATION
     Route: 065
  24. PREMARIN [Concomitant]
     Indication: PRODUCT USED FOR UNKNOWN INDICATION
     Route: 065
  25. HYDROCHLOROTHIAZIDE [Concomitant]
     Indication: PRODUCT USED FOR UNKNOWN INDICATION
     Route: 065
  26. CIPROFLOXACIN HYDROCHLORIDE [Concomitant]
     Indication: PRODUCT USED FOR UNKNOWN INDICATION
     Route: 065

REACTIONS (14)
  - ARRHYTHMIA [None]
  - ARTERIOVENOUS FISTULA THROMBOSIS [None]
  - ATRIAL FIBRILLATION [None]
  - BLOOD PRESSURE DECREASED [None]
  - CARDIAC FAILURE CONGESTIVE [None]
  - CHEST DISCOMFORT [None]
  - DIALYSIS DISEQUILIBRIUM SYNDROME [None]
  - DRUG HYPERSENSITIVITY [None]
  - DYSPNOEA [None]
  - HALLUCINATION [None]
  - HEART RATE IRREGULAR [None]
  - OEDEMA PERIPHERAL [None]
  - SYNCOPE [None]
  - THROMBOCYTOPENIA [None]
